FAERS Safety Report 8346025-5 (Version None)
Quarter: 2012Q2

REPORT INFORMATION
  Report Type: 
  Country: None (occurrence: None)
  Receive Date: 20120509
  Receipt Date: 20120508
  Transmission Date: 20120825
  Serious: No
  Sender: FDA-Public Use
  Company Number: US-PFIZER INC-2012112154

PATIENT
  Sex: Male
  Weight: 71.202 kg

DRUGS (2)
  1. ALBUTEROL SULFATE [Concomitant]
     Indication: ASTHMA
     Dosage: 1-2 PUFFS AS NEEDED
  2. CHANTIX [Suspect]
     Indication: SMOKING CESSATION THERAPY
     Dosage: 0.5 MG, 1X/DAY
     Dates: start: 20120506

REACTIONS (1)
  - CHEST DISCOMFORT [None]
